FAERS Safety Report 6907019-7 (Version None)
Quarter: 2010Q3

REPORT INFORMATION
  Report Type: 
  Country: None (occurrence: None)
  Receive Date: 20100804
  Receipt Date: 20070808
  Transmission Date: 20110219
  Serious: No
  Sender: FDA-Public Use
  Company Number: US-PFIZER INC-2007067436

PATIENT
  Age: 43 Year
  Sex: Female

DRUGS (6)
  1. ZARONTIN [Suspect]
     Indication: PETIT MAL EPILEPSY
  2. ZARONTIN [Suspect]
     Indication: GRAND MAL CONVULSION
  3. KEPPRA [Concomitant]
  4. LAMICTAL [Concomitant]
  5. TOPAMAX [Concomitant]
  6. DEPAKOTE [Concomitant]

REACTIONS (1)
  - RASH [None]
